FAERS Safety Report 6481232-8 (Version None)
Quarter: 2009Q4

REPORT INFORMATION
  Report Type: 
  Country: None (occurrence: None)
  Receive Date: 20091203
  Receipt Date: 20091119
  Transmission Date: 20100525
  Serious: Yes (Other)
  Sender: FDA-Public Use
  Company Number: 1000010490

PATIENT
  Sex: Female

DRUGS (2)
  1. ESCITALOPRAM [Suspect]
     Indication: BIPOLAR DISORDER
     Dates: start: 20070101
  2. LAMOTRIGINE [Concomitant]

REACTIONS (4)
  - EOSINOPHILIA [None]
  - INFLAMMATION [None]
  - NASOPHARYNGITIS [None]
  - PLEURAL EFFUSION [None]
